FAERS Safety Report 17106279 (Version 1)
Quarter: 2019Q4

REPORT INFORMATION
  Report Type: Spontaneous
  Country: MQ (occurrence: MQ)
  Receive Date: 20191203
  Receipt Date: 20191203
  Transmission Date: 20200122
  Serious: Yes (Other)
  Sender: FDA-Public Use
  Company Number: MQ-GLAXOSMITHKLINE-MQ2019GSK213699

PATIENT
  Age: 53 Year
  Sex: Male

DRUGS (5)
  1. MYCOPHENOLATE MOFETIL. [Suspect]
     Active Substance: MYCOPHENOLATE MOFETIL
     Indication: SYSTEMIC LUPUS ERYTHEMATOSUS
     Dosage: UNK
  2. CYCLOPHOSPHAMIDE. [Concomitant]
     Active Substance: CYCLOPHOSPHAMIDE
     Indication: SYSTEMIC LUPUS ERYTHEMATOSUS
     Dosage: UNK
  3. AZATHIOPRINE. [Suspect]
     Active Substance: AZATHIOPRINE
     Indication: SYSTEMIC LUPUS ERYTHEMATOSUS
     Dosage: UNK
  4. IVERMECTIN. [Concomitant]
     Active Substance: IVERMECTIN
     Indication: ACARODERMATITIS
     Dosage: UNK
  5. BELIMUMAB [Suspect]
     Active Substance: BELIMUMAB
     Indication: SYSTEMIC LUPUS ERYTHEMATOSUS
     Dosage: UNK

REACTIONS (4)
  - Acarodermatitis [Recovered/Resolved]
  - Drug-induced liver injury [Unknown]
  - Pruritus [Recovered/Resolved]
  - Hyperkeratosis [Recovered/Resolved]
